FAERS Safety Report 16034685 (Version 2)
Quarter: 2019Q1

REPORT INFORMATION
  Report Type: Report from Study
  Country: IT (occurrence: IT)
  Receive Date: 20190305
  Receipt Date: 20190308
  Transmission Date: 20190418
  Serious: Yes (Hospitalization, Other)
  Sender: FDA-Public Use
  Company Number: IT-MYLANLABS-2019M1019309

PATIENT
  Age: 83 Year
  Sex: Male

DRUGS (3)
  1. ELIQUIS [Suspect]
     Active Substance: APIXABAN
     Indication: PRODUCT USED FOR UNKNOWN INDICATION
     Dosage: 80 DOSAGE FORM, ONCE
     Route: 048
     Dates: start: 20180703
  2. CARVEDILOL. [Suspect]
     Active Substance: CARVEDILOL
     Indication: PRODUCT USED FOR UNKNOWN INDICATION
     Dosage: 321.5 MILLIGRAM, ONCE
     Route: 048
     Dates: start: 20180703, end: 20180703
  3. ISOSORBIDE MONONITRATE. [Suspect]
     Active Substance: ISOSORBIDE MONONITRATE
     Indication: PRODUCT USED FOR UNKNOWN INDICATION
     Dosage: 200 MILLIGRAM, ONCE
     Route: 048
     Dates: start: 20180703, end: 20180703

REACTIONS (8)
  - Overdose [Recovering/Resolving]
  - Epistaxis [Recovering/Resolving]
  - Sopor [Recovering/Resolving]
  - Arrhythmia [Recovering/Resolving]
  - Delirium [Recovering/Resolving]
  - Drug abuse [Recovering/Resolving]
  - Haematuria [Recovering/Resolving]
  - Hypotension [Recovering/Resolving]

NARRATIVE: CASE EVENT DATE: 20180703
